FAERS Safety Report 12943293 (Version 2)
Quarter: 2016Q4

REPORT INFORMATION
  Report Type: Spontaneous
  Country: US (occurrence: US)
  Receive Date: 20161115
  Receipt Date: 20161215
  Transmission Date: 20170207
  Serious: Yes (Other)
  Sender: FDA-Public Use
  Company Number: US-AKORN PHARMACEUTICALS-2016AKN00795

PATIENT
  Sex: Female

DRUGS (4)
  1. MIRENA [Concomitant]
     Active Substance: LEVONORGESTREL
  2. MYORISAN [Suspect]
     Active Substance: ISOTRETINOIN
     Dosage: 40 MG, 2X/DAY
     Dates: start: 20160615, end: 20160722
  3. CLARAVIS [Suspect]
     Active Substance: ISOTRETINOIN
     Dosage: 40 MG, 2X/DAY
     Dates: start: 20160723, end: 20160924
  4. MYORISAN [Suspect]
     Active Substance: ISOTRETINOIN
     Dosage: 80 UNK, UNK
     Dates: start: 20160925, end: 20161028

REACTIONS (4)
  - Abortion spontaneous [Recovered/Resolved]
  - Emotional disorder [Unknown]
  - Exposure during pregnancy [Recovered/Resolved]
  - Vaginal haemorrhage [Unknown]

NARRATIVE: CASE EVENT DATE: 2016
